FAERS Safety Report 8467849-X (Version None)
Quarter: 2012Q2

REPORT INFORMATION
  Report Type: 
  Country: None (occurrence: None)
  Receive Date: 20120626
  Receipt Date: 20120618
  Transmission Date: 20120825
  Serious: Yes (Death)
  Sender: FDA-Public Use
  Company Number: JP-GLAXOSMITHKLINE-B0803885A

PATIENT
  Sex: Male

DRUGS (13)
  1. REMERON [Concomitant]
     Indication: DEPRESSION
     Dosage: 7.5MG PER DAY
     Route: 048
     Dates: start: 20120301, end: 20120501
  2. ALOSENN [Concomitant]
     Dosage: 1G PER DAY
     Route: 048
     Dates: start: 20120301, end: 20120501
  3. PAXIL [Suspect]
     Indication: DEPRESSION
     Dosage: 10MG PER DAY
     Route: 048
     Dates: start: 20120413, end: 20120501
  4. OMEPRAZOLE [Concomitant]
     Dosage: 10MG PER DAY
     Route: 048
     Dates: end: 20120501
  5. GASCON [Concomitant]
     Dosage: 160MG PER DAY
     Route: 048
     Dates: end: 20120501
  6. TEPRENONE [Concomitant]
     Dosage: 1.5G PER DAY
     Route: 048
     Dates: end: 20120501
  7. CALCITAMIN [Concomitant]
     Dosage: 1MCG PER DAY
     Route: 048
     Dates: end: 20120501
  8. PRIMPERAN TAB [Concomitant]
     Dosage: 10MG PER DAY
     Route: 048
     Dates: start: 20120413, end: 20120501
  9. MAGMITT [Concomitant]
     Dosage: 990MG PER DAY
     Route: 048
     Dates: end: 20120501
  10. ALPRAZOLAM [Concomitant]
     Dosage: .4MG PER DAY
     Route: 048
     Dates: end: 20120501
  11. LEVOTHYROXINE SODIUM [Concomitant]
     Dosage: 50MG PER DAY
     Route: 048
     Dates: start: 20120501, end: 20120501
  12. LEDOLPER [Concomitant]
     Indication: DEPRESSION
     Dosage: .125MG PER DAY
     Route: 048
     Dates: start: 20120301, end: 20120501
  13. CERNILTON [Concomitant]
     Dosage: 6IUAX PER DAY
     Route: 048
     Dates: end: 20120501

REACTIONS (25)
  - ASPARTATE AMINOTRANSFERASE INCREASED [None]
  - ALANINE AMINOTRANSFERASE INCREASED [None]
  - ASCITES [None]
  - BLOOD ALKALINE PHOSPHATASE INCREASED [None]
  - FLUID RETENTION [None]
  - DECREASED APPETITE [None]
  - JAUNDICE [None]
  - HEPATIC ATROPHY [None]
  - BLOOD LACTATE DEHYDROGENASE INCREASED [None]
  - PORTAL VEIN FLOW DECREASED [None]
  - PROTEIN TOTAL DECREASED [None]
  - RENAL CYST [None]
  - HEPATIC FUNCTION ABNORMAL [None]
  - BLOOD BILIRUBIN INCREASED [None]
  - FLATULENCE [None]
  - OEDEMA [None]
  - POOR PERIPHERAL CIRCULATION [None]
  - HEPATIC FAILURE [None]
  - GAMMA-GLUTAMYLTRANSFERASE INCREASED [None]
  - BLOOD ALBUMIN DECREASED [None]
  - BILIRUBIN CONJUGATED INCREASED [None]
  - PROTHROMBIN TIME RATIO DECREASED [None]
  - INTERNATIONAL NORMALISED RATIO INCREASED [None]
  - INTESTINAL DILATATION [None]
  - PANCREATIC CYST [None]
